FAERS Safety Report 4339307-5 (Version None)
Quarter: 2004Q2

REPORT INFORMATION
  Report Type: 
  Country: None (occurrence: None)
  Receive Date: 20040414
  Receipt Date: 20040414
  Transmission Date: 20050107
  Serious: Yes (Other)
  Sender: FDA-Public Use
  Company Number: None

PATIENT
  Weight: 52.1637 kg

DRUGS (1)
  1. HYDROGEN PEROXIDE SOLUTION [Suspect]
     Indication: TOOTH DISCOLOURATION
     Dosage: TOPICAL 20 MIN X 3 DENTAL
     Route: 004
     Dates: start: 20040412, end: 20040412

REACTIONS (3)
  - PHARMACEUTICAL PRODUCT COMPLAINT [None]
  - SLEEP DISORDER [None]
  - TOOTHACHE [None]
